FAERS Safety Report 21381710 (Version 1)
Quarter: 2022Q3

REPORT INFORMATION
  Report Type: Spontaneous
  Country: US (occurrence: US)
  Receive Date: 20220927
  Receipt Date: 20220927
  Transmission Date: 20221026
  Serious: Yes (Other)
  Sender: FDA-Public Use
  Company Number: US-IGSA-BIG0020456

PATIENT
  Age: 65 Year
  Sex: Male

DRUGS (1)
  1. GAMUNEX-C [Suspect]
     Active Substance: HUMAN IMMUNOGLOBULIN G
     Indication: Chronic inflammatory demyelinating polyradiculoneuropathy
     Dosage: 100 GRAM, Q.6WK.
     Route: 042
     Dates: start: 20220913, end: 20220913

REACTIONS (4)
  - Hypersensitivity [Unknown]
  - Chest pain [Unknown]
  - Burning sensation [Unknown]
  - Urticaria [Unknown]

NARRATIVE: CASE EVENT DATE: 20220913
